FAERS Safety Report 25299447 (Version 2)
Quarter: 2025Q2

REPORT INFORMATION
  Report Type: Spontaneous
  Country: CN (occurrence: CN)
  Receive Date: 20250512
  Receipt Date: 20250516
  Transmission Date: 20250717
  Serious: Yes (Hospitalization)
  Sender: NOVARTIS
  Company Number: CN-002147023-NVSC2025CN075500

PATIENT
  Age: 82 Year
  Sex: Male
  Weight: 49.5 kg

DRUGS (1)
  1. GLIVEC [Suspect]
     Active Substance: IMATINIB MESYLATE
     Indication: Rectal cancer
     Dosage: 0.40 G, QD
     Route: 048
     Dates: start: 20210507, end: 20250424

REACTIONS (9)
  - Gastric mucosal lesion [Recovering/Resolving]
  - Blood potassium decreased [Recovering/Resolving]
  - Vomiting [Recovering/Resolving]
  - Gastrooesophageal reflux disease [Recovering/Resolving]
  - Nausea [Recovering/Resolving]
  - Asthenia [Recovering/Resolving]
  - Chronic gastritis [Recovering/Resolving]
  - Melanosis [Recovering/Resolving]
  - Inflammation [Recovering/Resolving]

NARRATIVE: CASE EVENT DATE: 20250424
